FAERS Safety Report 4794980-2 (Version None)
Quarter: 2005Q4

REPORT INFORMATION
  Report Type: 
  Country: None (occurrence: None)
  Receive Date: 20051006
  Receipt Date: 20050926
  Transmission Date: 20060501
  Serious: Yes (Hospitalization)
  Sender: FDA-Public Use
  Company Number: 12460

PATIENT
  Age: 60 Year
  Sex: Female

DRUGS (1)
  1. METHOTREXATE [Suspect]
     Indication: RHEUMATOID ARTHRITIS
     Dosage: 7.5 MG WEEKLY PO
     Route: 048
     Dates: start: 20041206, end: 20050127

REACTIONS (2)
  - HEPATIC FUNCTION ABNORMAL [None]
  - LOWER RESPIRATORY TRACT INFECTION [None]
